FAERS Safety Report 6888210-5 (Version None)
Quarter: 2010Q3

REPORT INFORMATION
  Report Type: 
  Country: None (occurrence: None)
  Receive Date: 20100708
  Receipt Date: 20091211
  Transmission Date: 20110219
  Serious: Yes (Other)
  Sender: FDA-Public Use
  Company Number: 2009289518

PATIENT
  Age: 51 Year
  Sex: Female
  Weight: 76.7 kg

DRUGS (14)
  1. CHANTIX [Suspect]
     Indication: SMOKING CESSATION THERAPY
     Dosage: 0.5 MG, 2X/DAY, ORAL
     Route: 048
     Dates: start: 20091012, end: 20091018
  2. MORPHINE (MORPINE) [Concomitant]
  3. DEPAKOTE [Concomitant]
  4. LAMICTAL [Concomitant]
  5. SEROQUEL [Concomitant]
  6. CLONAZEPAM [Concomitant]
  7. FOSAMAX [Concomitant]
  8. ALDACTONE [Concomitant]
  9. MS CONTIN [Concomitant]
  10. NORCO [Concomitant]
  11. VITAMIN D [Concomitant]
  12. CALCIUM (CALCIUM) [Concomitant]
  13. ASPIRIN [Concomitant]
  14. FLAXSEE OIL (LINSEED OIL) [Concomitant]

REACTIONS (7)
  - ABNORMAL DREAMS [None]
  - ANXIETY [None]
  - DEPRESSION [None]
  - HYPERSOMNIA [None]
  - MUSCULOSKELETAL STIFFNESS [None]
  - SUICIDAL IDEATION [None]
  - THINKING ABNORMAL [None]
